FAERS Safety Report 10029775 (Version 1)
Quarter: 2014Q1

REPORT INFORMATION
  Report Type: Spontaneous
  Country: US (occurrence: None)
  Receive Date: 20140321
  Receipt Date: 20140321
  Transmission Date: 20141002
  Serious: Yes (Hospitalization)
  Sender: FDA-Public Use
  Company Number: None

PATIENT
  Age: 61 Year
  Sex: Male
  Weight: 86 kg

DRUGS (5)
  1. ELIQUIS [Suspect]
     Indication: ATRIAL FIBRILLATION
     Route: 048
  2. LISINOPRIL [Concomitant]
  3. KLOR-CON [Concomitant]
  4. CARVEDILOL [Concomitant]
  5. DIGOXIN [Concomitant]

REACTIONS (2)
  - Haemorrhage intracranial [None]
  - Road traffic accident [None]
